FAERS Safety Report 4665501-X (Version None)
Quarter: 2005Q2

REPORT INFORMATION
  Report Type: 
  Country: None (occurrence: None)
  Receive Date: 20050519
  Receipt Date: 20050225
  Transmission Date: 20051028
  Serious: No
  Sender: FDA-Public Use
  Company Number: US-BRISTOL-MYERS SQUIBB COMPANY-12876736

PATIENT
  Age: 72 Year
  Sex: Female
  Weight: 58 kg

DRUGS (1)
  1. CYTOXAN [Suspect]
     Indication: NEOPLASM MALIGNANT
     Dates: start: 19800101, end: 19810101

REACTIONS (1)
  - MALAISE [None]
